FAERS Safety Report 17861426 (Version 4)
Quarter: 2021Q4

REPORT INFORMATION
  Report Type: Spontaneous
  Country: NL (occurrence: NL)
  Receive Date: 20200604
  Receipt Date: 20211217
  Transmission Date: 20220304
  Serious: Yes (Other)
  Sender: FDA-Public Use
  Company Number: None

PATIENT

DRUGS (4)
  1. METRONIDAZOLE [Suspect]
     Active Substance: METRONIDAZOLE
     Indication: Product used for unknown indication
     Dosage: 1 DOSAGE FORM
     Route: 065
  2. HUMAN RED BLOOD CELL [Concomitant]
     Active Substance: HUMAN RED BLOOD CELL
     Indication: Procedural haemorrhage
     Dosage: 2 DOSAGE FORM
     Route: 065
     Dates: start: 20200422, end: 20200422
  3. MITOMYCIN [Concomitant]
     Active Substance: MITOMYCIN
     Indication: Hyperthermic chemotherapy
     Dosage: ,
     Route: 065
  4. OMNIPLASMA [Concomitant]
     Active Substance: HUMAN PLASMA
     Indication: Procedural haemorrhage
     Dosage: 800 MILLILITER, 2 EH BLGR AB
     Route: 042
     Dates: start: 20200422, end: 20200422

REACTIONS (5)
  - Anaphylactic reaction [Recovered/Resolved]
  - Blood pressure decreased [Recovered/Resolved]
  - Blister [Recovered/Resolved]
  - Urticaria [Recovered/Resolved]
  - Erythema [Recovered/Resolved]

NARRATIVE: CASE EVENT DATE: 20200422
